FAERS Safety Report 6903800-9 (Version None)
Quarter: 2010Q3

REPORT INFORMATION
  Report Type: 
  Country: None (occurrence: None)
  Receive Date: 20100804
  Receipt Date: 20081229
  Transmission Date: 20110219
  Serious: No
  Sender: FDA-Public Use
  Company Number: US-PFIZER INC-2008096833

PATIENT
  Age: 47 Year
  Sex: Male
  Weight: 86.2 kg

DRUGS (5)
  1. LYRICA [Suspect]
     Indication: FIBROMYALGIA
     Dosage: 100 MG, 2X/DAY
     Route: 048
     Dates: start: 20081030, end: 20081110
  2. ACIPHEX [Concomitant]
     Dosage: UNK
  3. ALPRAZOLAM [Concomitant]
     Dosage: UNK
  4. AMITRIPTYLINE [Concomitant]
     Dosage: UNK
  5. TRAMADOL [Concomitant]
     Dosage: UNK

REACTIONS (1)
  - URTICARIA [None]
